FAERS Safety Report 11883772 (Version 1)
Quarter: 2016Q1

REPORT INFORMATION
  Report Type: Spontaneous
  Country: US (occurrence: US)
  Receive Date: 20160101
  Receipt Date: 20160101
  Transmission Date: 20160526
  Serious: No
  Sender: FDA-Public Use
  Company Number: US-ASTRAZENECA-2015SF30076

PATIENT
  Sex: Female

DRUGS (2)
  1. TUDORZA PRESSAIR [Suspect]
     Active Substance: ACLIDINIUM BROMIDE
     Dosage: ONE PUFF TWICE DAILY
     Route: 055
  2. TUDORZA PRESSAIR [Suspect]
     Active Substance: ACLIDINIUM BROMIDE
     Dosage: SOMETIMES SHE ONLY DOES ONE PUFF ONCE A DAY
     Route: 055

REACTIONS (5)
  - Abdominal discomfort [Unknown]
  - Product quality issue [Unknown]
  - Glaucoma [Unknown]
  - Headache [Unknown]
  - Intentional product misuse [Unknown]
